FAERS Safety Report 5080245-0 (Version None)
Quarter: 2006Q3

REPORT INFORMATION
  Report Type: 
  Country: None (occurrence: None)
  Receive Date: 20060815
  Receipt Date: 20060803
  Transmission Date: 20061208
  Serious: Yes (Other)
  Sender: FDA-Public Use
  Company Number: US-GILEAD-2006-0009981

PATIENT
  Age: 41 Year
  Sex: Male
  Weight: 45 kg

DRUGS (6)
  1. VIREAD [Suspect]
     Indication: HIV INFECTION
  2. FOSAMPRENAVIR [Concomitant]
     Indication: HIV INFECTION
  3. RITONAVIR [Concomitant]
     Indication: HIV INFECTION
  4. ABACAVIR [Concomitant]
     Indication: HIV INFECTION
  5. LAMIVUDINE [Concomitant]
     Indication: HIV INFECTION
  6. ATAZANAVIR [Concomitant]
     Indication: HIV INFECTION

REACTIONS (6)
  - DIABETES INSIPIDUS [None]
  - HYPOKALAEMIA [None]
  - HYPOPHOSPHATAEMIA [None]
  - PARALYSIS [None]
  - RENAL TUBULAR DISORDER [None]
  - RHABDOMYOLYSIS [None]
